FAERS Safety Report 7920737 (Version 8)
Quarter: 2014Q4

REPORT INFORMATION
  Report Type: Spontaneous
  Country: US (occurrence: US)
  Receive Date: 20110429
  Receipt Date: 20141212
  Transmission Date: 20150529
  Serious: No
  Sender: FDA-Public Use
  Company Number: US-ASTRAZENECA-2010SE15509

PATIENT
  Age: 57 Year
  Sex: Male
  Weight: 122.5 kg

DRUGS (5)
  1. RANITIDINDE [Concomitant]
     Indication: GASTROOESOPHAGEAL REFLUX DISEASE
  2. NEXIUM [Suspect]
     Active Substance: ESOMEPRAZOLE MAGNESIUM
     Indication: GASTROOESOPHAGEAL REFLUX DISEASE
     Route: 048
  3. XANAX [Concomitant]
     Active Substance: ALPRAZOLAM
     Indication: ANXIETY
  4. PRILOSEC [Suspect]
     Active Substance: OMEPRAZOLE MAGNESIUM
     Route: 048
  5. NEXIUM [Suspect]
     Active Substance: ESOMEPRAZOLE MAGNESIUM
     Route: 048

REACTIONS (24)
  - Anxiety [Unknown]
  - Gastrointestinal disorder [Unknown]
  - Abdominal pain [Unknown]
  - Drug ineffective [Unknown]
  - Skin disorder [Unknown]
  - Dyspepsia [Unknown]
  - Emphysema [Unknown]
  - Depression [Unknown]
  - Gastrooesophageal reflux disease [Unknown]
  - Gastric disorder [Unknown]
  - Pain [Unknown]
  - Schizophrenia [Unknown]
  - Feeding disorder [Not Recovered/Not Resolved]
  - Diarrhoea [Unknown]
  - Hernia [Unknown]
  - Hepatic cirrhosis [Unknown]
  - Faeces discoloured [Unknown]
  - Malaise [Unknown]
  - Vomiting [Unknown]
  - Intentional product misuse [Unknown]
  - Disturbance in attention [Unknown]
  - Drug dose omission [Unknown]
  - Mental disorder [Unknown]
  - Insomnia [Not Recovered/Not Resolved]
